FAERS Safety Report 5744536-X (Version None)
Quarter: 2008Q2

REPORT INFORMATION
  Report Type: 
  Country: None (occurrence: None)
  Receive Date: 20080520
  Receipt Date: 20080505
  Transmission Date: 20081010
  Serious: Yes (Other)
  Sender: FDA-Public Use
  Company Number: IT-GENENTECH-261056

PATIENT

DRUGS (7)
  1. AVASTIN [Suspect]
     Indication: RENAL CANCER
     Dosage: 10 MG/KG, UNK
  2. INTERFERON ALFA [Suspect]
     Indication: RENAL CANCER
     Dosage: 3 MIU, D 10, 12, 17 AND 19
     Route: 058
  3. PROLEUKIN [Suspect]
     Indication: RENAL CANCER
     Dosage: 1 MIU, UNK
     Route: 058
  4. GEMCITABINE [Suspect]
     Indication: RENAL CANCER
     Dosage: 600 MG/M2, UNK
  5. GEMCITABINE [Suspect]
     Dosage: 1000 MG/M2, UNK
  6. FLUOROURACIL [Suspect]
     Indication: RENAL CANCER
     Dosage: 400 MG/M2, UNK
     Route: 040
  7. FLUOROURACIL [Suspect]
     Dosage: 600 MG/M2, UNK

REACTIONS (9)
  - ANAEMIA [None]
  - ASTHENIA [None]
  - DISEASE PROGRESSION [None]
  - DRUG TOXICITY [None]
  - FEBRILE NEUTROPENIA [None]
  - HYPERTENSION [None]
  - NEUTROPENIA [None]
  - THROMBOCYTOPENIA [None]
  - TRANSAMINASES INCREASED [None]
